FAERS Safety Report 16151006 (Version 3)
Quarter: 2019Q2

REPORT INFORMATION
  Report Type: Spontaneous
  Country: US (occurrence: US)
  Receive Date: 20190403
  Receipt Date: 20190423
  Transmission Date: 20190711
  Serious: Yes (Other)
  Sender: FDA-Public Use
  Company Number: US-JNJFOC-20190337122

PATIENT
  Age: 74 Year
  Sex: Female

DRUGS (4)
  1. XARELTO [Suspect]
     Active Substance: RIVAROXABAN
     Indication: ATRIAL FIBRILLATION
     Route: 048
  2. PREDNISONE. [Suspect]
     Active Substance: PREDNISONE
     Indication: C-REACTIVE PROTEIN INCREASED
     Dosage: SLOWLY TITRATED DOWN 1MG A MONTH
     Route: 065
     Dates: start: 201801, end: 201810
  3. TOPROL XL [Concomitant]
     Active Substance: METOPROLOL SUCCINATE
     Indication: HEART RATE ABNORMAL
     Route: 065
     Dates: start: 2000
  4. XARELTO [Suspect]
     Active Substance: RIVAROXABAN
     Indication: CEREBROVASCULAR ACCIDENT PROPHYLAXIS
     Route: 048

REACTIONS (8)
  - Fibromyalgia [Unknown]
  - Weight increased [Unknown]
  - Tooth disorder [Unknown]
  - Arrhythmia [Unknown]
  - Arthropathy [Unknown]
  - Ligamentitis [Unknown]
  - C-reactive protein increased [Unknown]
  - Product label issue [Unknown]

NARRATIVE: CASE EVENT DATE: 201709
